FAERS Safety Report 13654098 (Version 4)
Quarter: 2017Q3

REPORT INFORMATION
  Report Type: Report from Study
  Country: MD (occurrence: MD)
  Receive Date: 20170614
  Receipt Date: 20170727
  Transmission Date: 20171127
  Serious: Yes (Other)
  Sender: FDA-Public Use
  Company Number: MD-JNJFOC-20170607187

PATIENT
  Age: 52 Year
  Sex: Female
  Weight: 78 kg

DRUGS (3)
  1. SIMEPREVIR [Suspect]
     Active Substance: SIMEPREVIR
     Indication: CHRONIC HEPATITIS C
     Dosage: 1 CAPSULE
     Route: 048
     Dates: start: 20170418, end: 20170605
  2. AL-335 [Suspect]
     Active Substance: INVESTIGATIONAL PRODUCT
     Indication: CHRONIC HEPATITIS C
     Dosage: 2 TABS
     Route: 048
     Dates: start: 20170418, end: 20170605
  3. ODALASVIR [Suspect]
     Active Substance: ODALASVIR
     Indication: CHRONIC HEPATITIS C
     Dosage: 1 TAB
     Route: 048
     Dates: start: 20170418, end: 20170605

REACTIONS (2)
  - Alanine aminotransferase increased [Recovered/Resolved]
  - Aspartate aminotransferase increased [Recovered/Resolved]

NARRATIVE: CASE EVENT DATE: 20170606
